FAERS Safety Report 9274316 (Version 2)
Quarter: 2013Q4

REPORT INFORMATION
  Report Type: Report from Study
  Country: US (occurrence: US)
  Receive Date: 20130506
  Receipt Date: 20131015
  Transmission Date: 20140711
  Serious: Yes (Hospitalization)
  Sender: FDA-Public Use
  Company Number: US-ELI_LILLY_AND_COMPANY-US201301006906

PATIENT
  Sex: Female

DRUGS (12)
  1. TERIPARATIDE [Suspect]
     Indication: OSTEOPOROSIS
     Dosage: 20 UG, QD
     Route: 065
     Dates: start: 20121226
  2. TERIPARATIDE [Suspect]
     Indication: OSTEOARTHRITIS
     Dosage: 20 UG, QD
     Route: 065
  3. OMEGA 3 [Concomitant]
     Dosage: 2 CAPSULES, QD
     Route: 065
  4. VESICARE [Concomitant]
     Indication: HYPERTONIC BLADDER
     Dosage: UNK, QD
     Route: 065
  5. NORVASC [Concomitant]
     Dosage: 10 MG, QD
     Route: 065
  6. VITAMIN D [Concomitant]
     Dosage: 1 DF, QD
     Route: 065
  7. NEXIUM [Concomitant]
     Dosage: 40 MG, QD
     Route: 065
  8. MULTIVITAMIN [Concomitant]
     Dosage: 1 DF, QD
     Route: 065
  9. OXYCODONE [Concomitant]
     Dosage: 325 MG, EVERY 6 HRS
     Route: 065
  10. NAPROXEN [Concomitant]
     Dosage: 1 DF, QD
     Route: 065
  11. MIRALAX [Concomitant]
     Dosage: UNK UNK, QD
     Route: 065
  12. CYMBALTA [Concomitant]
     Dosage: 1 CAPSULE, QD
     Route: 065

REACTIONS (4)
  - Gastric ulcer [Unknown]
  - Arthralgia [Not Recovered/Not Resolved]
  - Pain in extremity [Unknown]
  - Gastrooesophageal reflux disease [Unknown]
